FAERS Safety Report 6230047-4 (Version None)
Quarter: 2009Q2

REPORT INFORMATION
  Report Type: 
  Country: None (occurrence: None)
  Receive Date: 20090615
  Receipt Date: 20090601
  Transmission Date: 20091009
  Serious: Yes (Death, Other)
  Sender: FDA-Public Use
  Company Number: GB-MYLANLABS-2009S1009767

PATIENT
  Age: 63 Year
  Sex: Male

DRUGS (6)
  1. GABAPENTIN [Suspect]
     Indication: NEURALGIA
  2. CLONIDINE [Suspect]
     Indication: NEURALGIA
     Route: 008
  3. CLONIDINE [Suspect]
     Route: 048
  4. BUPIVACAINE [Suspect]
     Indication: NEURALGIA
     Route: 048
  5. MORPHINE [Suspect]
     Indication: DRUG USE FOR UNKNOWN INDICATION
     Route: 008
  6. MORPHINE [Suspect]

REACTIONS (2)
  - DEATH [None]
  - DRUG INEFFECTIVE [None]
